FAERS Safety Report 7426301-0 (Version None)
Quarter: 2011Q2

REPORT INFORMATION
  Report Type: 
  Country: None (occurrence: None)
  Receive Date: 20110420
  Receipt Date: 20110412
  Transmission Date: 20111010
  Serious: Yes (Life-Threatening)
  Sender: FDA-Public Use
  Company Number: A0923427A

PATIENT
  Sex: Female
  Weight: 55 kg

DRUGS (3)
  1. LAMICTAL [Suspect]
     Dosage: 75MG SEE DOSAGE TEXT
     Route: 048
     Dates: start: 20110303, end: 20110412
  2. SODIUM DIVALPROATE [Concomitant]
     Route: 048
     Dates: end: 20110412
  3. FLUOXETINE [Concomitant]
     Indication: DEPRESSION
     Dosage: 20MG PER DAY
     Route: 048

REACTIONS (2)
  - RASH [None]
  - BRONCHOSPASM [None]
